FAERS Safety Report 8473620-5 (Version None)
Quarter: 2012Q2

REPORT INFORMATION
  Report Type: 
  Country: None (occurrence: None)
  Receive Date: 20120628
  Receipt Date: 20110811
  Transmission Date: 20120825
  Serious: Yes (Other)
  Sender: FDA-Public Use
  Company Number: US-MYLANLABS-2011S1014408

PATIENT
  Age: 13 Year
  Sex: Male

DRUGS (10)
  1. DOXYCYCLINE [Concomitant]
  2. CLOZAPINE [Suspect]
     Route: 048
     Dates: start: 20110629, end: 20110808
  3. THIOTHIXENE /00099101/ [Concomitant]
  4. CLOZAPINE [Suspect]
     Route: 048
     Dates: start: 20110629, end: 20110808
  5. BENADRYL [Concomitant]
  6. TENEX [Concomitant]
  7. GABAPENTIN [Concomitant]
  8. BENZOYL PEROXIDE [Concomitant]
  9. METFORMIN HCL [Concomitant]
  10. DOCUSATE [Concomitant]

REACTIONS (1)
  - GRANULOCYTOPENIA [None]
